FAERS Safety Report 5491632-0 (Version None)
Quarter: 2007Q4

REPORT INFORMATION
  Report Type: 
  Country: None (occurrence: None)
  Receive Date: 20071022
  Receipt Date: 20071008
  Transmission Date: 20080405
  Serious: Yes (Other)
  Sender: FDA-Public Use
  Company Number: HU-ELI_LILLY_AND_COMPANY-HU200710002114

PATIENT
  Age: 38 Year
  Sex: Male

DRUGS (1)
  1. OLANZAPINE [Suspect]
     Indication: PSYCHOTIC DISORDER
     Dosage: 10 MG, DAILY (1/D)
     Route: 048

REACTIONS (5)
  - DYSARTHRIA [None]
  - DYSPHAGIA [None]
  - FREEZING PHENOMENON [None]
  - HEPATO-LENTICULAR DEGENERATION [None]
  - POSTURE ABNORMAL [None]
